FAERS Safety Report 24607687 (Version 2)
Quarter: 2024Q4

REPORT INFORMATION
  Report Type: Spontaneous
  Country: IT (occurrence: IT)
  Receive Date: 20241112
  Receipt Date: 20241114
  Transmission Date: 20250115
  Serious: Yes (Life-Threatening, Hospitalization, Other)
  Sender: RANBAXY
  Company Number: IT-RANBAXY-2011R1-43843

PATIENT
  Age: 45 Year
  Sex: Female

DRUGS (10)
  1. ACENOCOUMAROL [Interacting]
     Active Substance: ACENOCOUMAROL
     Indication: Anticoagulant therapy
     Dosage: UNK
     Route: 048
  2. DEFERASIROX [Interacting]
     Active Substance: DEFERASIROX
     Indication: Thalassaemia beta
     Dosage: UNK
     Route: 065
  3. MESALAMINE [Interacting]
     Active Substance: MESALAMINE
     Indication: Intestinal ulcer
     Dosage: 1200 MILLIGRAM, QD
     Route: 065
  4. HERBALS [Interacting]
     Active Substance: HERBALS
     Indication: Weight loss diet
     Dosage: 3G/ DAY
     Route: 065
  5. SALICYLATE [Interacting]
     Active Substance: SALICYLIC ACID
     Indication: Intestinal ulcer
     Dosage: UNK
     Route: 065
  6. AZATHIOPRINE [Interacting]
     Active Substance: AZATHIOPRINE
     Indication: Colitis ulcerative
     Dosage: 100 MILLIGRAM, BID
     Route: 065
  7. CHOLECALCIFEROL [Interacting]
     Active Substance: CHOLECALCIFEROL
     Indication: Colitis ulcerative
     Route: 065
  8. DYDROGESTERONE [Interacting]
     Active Substance: DYDROGESTERONE
     Indication: Thalassaemia beta
     Dosage: UNK
     Route: 065
  9. FOLIC ACID [Interacting]
     Active Substance: FOLIC ACID
     Indication: Thalassaemia beta
     Dosage: UNK
     Route: 065
  10. TOCOPHEROL [Interacting]
     Active Substance: TOCOPHEROL
     Indication: Product used for unknown indication
     Dosage: UNK
     Route: 065

REACTIONS (14)
  - Acidosis [Recovered/Resolved]
  - Acute haemorrhagic ulcerative colitis [Recovered/Resolved]
  - Toxicity to various agents [Recovered/Resolved]
  - Drug interaction [Recovered/Resolved]
  - Hepatotoxicity [Recovered/Resolved]
  - Abdominal pain [Recovered/Resolved]
  - Colitis ulcerative [Recovered/Resolved]
  - Nephropathy toxic [Recovered/Resolved]
  - Pyrexia [Recovered/Resolved]
  - Diarrhoea [Recovered/Resolved]
  - International normalised ratio decreased [Recovered/Resolved]
  - Therapeutic product effect decreased [Recovered/Resolved]
  - Fatigue [Recovered/Resolved]
  - Anaemia [Recovered/Resolved]
